FAERS Safety Report 7491919-6 (Version None)
Quarter: 2011Q2

REPORT INFORMATION
  Report Type: 
  Country: None (occurrence: None)
  Receive Date: 20110511
  Receipt Date: 20110504
  Transmission Date: 20111010
  Serious: Yes (Hospitalization)
  Sender: FDA-Public Use
  Company Number: A0917050A

PATIENT
  Age: 89 Year
  Sex: Male

DRUGS (6)
  1. METOPROLOL TARTRATE [Concomitant]
  2. MULTI-VITAMIN [Concomitant]
  3. ASPIRIN [Suspect]
     Dosage: 81 MG/ ORAL
     Route: 048
  4. OMEPRAZOLE [Concomitant]
  5. WARFARIN SODIUM [Suspect]
     Indication: ATRIAL FIBRILLATION
     Dosage: 2.5 MG/ PER DAY/ ORAL
     Route: 048
  6. NITROGLYCERIN [Concomitant]

REACTIONS (1)
  - GASTROINTESTINAL HAEMORRHAGE [None]
